FAERS Safety Report 7288463-8 (Version None)
Quarter: 2011Q1

REPORT INFORMATION
  Report Type: 
  Country: None (occurrence: None)
  Receive Date: 20110211
  Receipt Date: 20110207
  Transmission Date: 20110831
  Serious: Yes (Hospitalization)
  Sender: FDA-Public Use
  Company Number: B0697790A

PATIENT
  Sex: Female
  Weight: 83.4 kg

DRUGS (2)
  1. XELODA [Concomitant]
     Dosage: 4000MG PER DAY
     Route: 048
     Dates: start: 20101125, end: 20101207
  2. TYVERB [Suspect]
     Dosage: 1250MG PER DAY
     Route: 048
     Dates: start: 20101125, end: 20101221

REACTIONS (8)
  - MOUTH ULCERATION [None]
  - PRODUCT QUALITY ISSUE [None]
  - NAUSEA [None]
  - DIARRHOEA [None]
  - MUCOSAL INFLAMMATION [None]
  - DYSPHAGIA [None]
  - ATAXIA [None]
  - VOMITING [None]
